FAERS Safety Report 6012214-8 (Version None)
Quarter: 2008Q4

REPORT INFORMATION
  Report Type: 
  Country: None (occurrence: None)
  Receive Date: 20081218
  Receipt Date: 20070907
  Transmission Date: 20090506
  Serious: No
  Sender: FDA-Public Use
  Company Number: US-ABBOTT-08P-163-0449297-00

PATIENT
  Sex: Male

DRUGS (5)
  1. MERIDIA [Suspect]
     Indication: DRUG USE FOR UNKNOWN INDICATION
  2. DEPAKOTE [Interacting]
     Indication: DRUG USE FOR UNKNOWN INDICATION
  3. BUPROPION HCL [Interacting]
     Indication: DRUG USE FOR UNKNOWN INDICATION
  4. QUETIAPINE FUMARATE [Interacting]
     Indication: DRUG USE FOR UNKNOWN INDICATION
  5. CLONAZEPAM [Interacting]
     Indication: DRUG USE FOR UNKNOWN INDICATION

REACTIONS (2)
  - CONVULSION [None]
  - DRUG INTERACTION [None]
